FAERS Safety Report 8948136 (Version 1)
Quarter: 2012Q4

REPORT INFORMATION
  Report Type: Spontaneous
  Country: TR (occurrence: None)
  Receive Date: 20121126
  Receipt Date: 20121126
  Transmission Date: 20130627
  Serious: Yes (Disabling)
  Sender: FDA-Public Use
  Company Number: 1497209

PATIENT
  Age: 4 Year
  Sex: Female

DRUGS (4)
  1. VINCRISTINE SULFATE [Suspect]
     Indication: ACUTE LYMPHOBLASTIC LEUKEMIA
     Dosage: 1.5 mg/m2, UNKNOWN, UNKNOWN
  2. DEXAMETHASONE [Suspect]
     Indication: ACUTE LYMPHOBLASTIC LEUKEMIA
     Dosage: 10 mg/m2 (UNKNOWN) Intravenous (not otherwise specified)
     Route: 042
  3. DOXORUBICIN [Suspect]
     Indication: ACUTE LYMPHOBLASTIC LEUKEMIA
     Dosage: 30 mg/m2, UNKNOWN , UNKNOWN
  4. L-ASPARAGINASE [Suspect]
     Indication: ACUTE LYMPHOBLASTIC LEUKEMIA
     Dosage: 1000 U/ m^2 , UNKNOWN, UNKNOWN

REACTIONS (2)
  - Drug interaction [None]
  - Toxicity to various agents [None]
